FAERS Safety Report 25727985 (Version 1)
Quarter: 2025Q3

REPORT INFORMATION
  Report Type: Spontaneous
  Country: US (occurrence: US)
  Receive Date: 20250826
  Receipt Date: 20250826
  Transmission Date: 20251021
  Serious: Yes (Hospitalization, Other)
  Sender: GLAXOSMITHKLINE
  Company Number: US-GSK-US2025103422

PATIENT
  Age: 71 Year
  Sex: Female

DRUGS (1)
  1. MEPOLIZUMAB [Suspect]
     Active Substance: MEPOLIZUMAB
     Indication: Asthma

REACTIONS (9)
  - Neurological symptom [Unknown]
  - Sensory loss [Unknown]
  - Neuropathy peripheral [Unknown]
  - Paralysis [Unknown]
  - Strabismus [Unknown]
  - Glassy eyes [Unknown]
  - Glioma [Unknown]
  - Demyelination [Unknown]
  - Leukocytosis [Unknown]

NARRATIVE: CASE EVENT DATE: 20250601
